FAERS Safety Report 7334390-7 (Version None)
Quarter: 2011Q1

REPORT INFORMATION
  Report Type: 
  Country: None (occurrence: None)
  Receive Date: 20110307
  Receipt Date: 20110222
  Transmission Date: 20110831
  Serious: Yes (Other)
  Sender: FDA-Public Use
  Company Number: PHFR2010GB05440

PATIENT
  Sex: Male

DRUGS (4)
  1. CLOZARIL [Suspect]
     Indication: SCHIZOPHRENIA
     Dosage: 250 MG, BID
     Route: 048
     Dates: start: 20091110, end: 20101130
  2. CLOZARIL [Suspect]
     Dosage: UNK
     Route: 048
  3. NICOTINE [Concomitant]
     Indication: SMOKING CESSATION THERAPY
  4. CAFFEINE [Concomitant]
     Indication: SMOKING CESSATION THERAPY

REACTIONS (3)
  - CAFFEINE CONSUMPTION [None]
  - DYSPNOEA [None]
  - SINUS TACHYCARDIA [None]
